FAERS Safety Report 9961436 (Version 1)
Quarter: 2014Q1

REPORT INFORMATION
  Report Type: Spontaneous
  Country: PH (occurrence: PH)
  Receive Date: 20140305
  Receipt Date: 20140305
  Transmission Date: 20141002
  Serious: Yes (Death)
  Sender: FDA-Public Use
  Company Number: PH-ASTELLAS-2014JP001598

PATIENT
  Sex: Male

DRUGS (1)
  1. MYCAMINE [Suspect]
     Dosage: 100 MG, UID/QD
     Route: 042
     Dates: start: 20140220

REACTIONS (1)
  - Death [Fatal]
